FAERS Safety Report 4346011-6 (Version None)
Quarter: 2004Q1

REPORT INFORMATION
  Report Type: 
  Country: None (occurrence: None)
  Receive Date: 20040325
  Receipt Date: 20040203
  Transmission Date: 20041129
  Serious: No
  Sender: FDA-Public Use
  Company Number: USA030638783

PATIENT
  Age: 78 Year
  Sex: Female

DRUGS (6)
  1. FORTEO [Suspect]
     Indication: OSTEOPOROSIS
     Dosage: 20 UG/DAY
     Dates: start: 20030523
  2. LOPRESSOR [Concomitant]
  3. ZYRTEC [Concomitant]
  4. CALCIUM [Concomitant]
  5. VITAMIN [Concomitant]
  6. ASPIRIN [Concomitant]

REACTIONS (4)
  - BACK PAIN [None]
  - NAIL DISORDER [None]
  - ONYCHORRHEXIS [None]
  - THERMAL BURN [None]
